FAERS Safety Report 8274964-2 (Version None)
Quarter: 2012Q1

REPORT INFORMATION
  Report Type: 
  Country: None (occurrence: None)
  Receive Date: 20120309
  Receipt Date: 20111128
  Transmission Date: 20120608
  Serious: Yes (Other)
  Sender: FDA-Public Use
  Company Number: TH-2011-00508

PATIENT
  Sex: Male
  Weight: 88 kg

DRUGS (5)
  1. EGRIFTA [Suspect]
     Indication: LIPODYSTROPHY ACQUIRED
     Dosage: 1 IN 1 D
     Dates: start: 20111107, end: 20111128
  2. REYATAZ [Concomitant]
  3. OMEPRAZOLE [Concomitant]
  4. TRUVADA [Concomitant]
  5. NORVIR [Concomitant]

REACTIONS (1)
  - HEPATOMEGALY [None]
